FAERS Safety Report 18714611 (Version 17)
Quarter: 2024Q1

REPORT INFORMATION
  Report Type: Report from Study
  Country: CO (occurrence: CO)
  Receive Date: 20210107
  Receipt Date: 20240215
  Transmission Date: 20240410
  Serious: Yes (Hospitalization, Other)
  Sender: FDA-Public Use
  Company Number: CO-TAKEDA-2020TUS039447

PATIENT
  Age: 19 Year
  Sex: Male
  Weight: 45 kg

DRUGS (1)
  1. VEDOLIZUMAB [Suspect]
     Active Substance: VEDOLIZUMAB
     Indication: Crohn^s disease
     Dosage: 300 MILLIGRAM
     Route: 042
     Dates: start: 20190812, end: 20231130

REACTIONS (25)
  - Suspected COVID-19 [Not Recovered/Not Resolved]
  - Haematochezia [Recovering/Resolving]
  - COVID-19 [Recovering/Resolving]
  - Mycobacterium tuberculosis complex test positive [Not Recovered/Not Resolved]
  - Dizziness [Recovered/Resolved]
  - Weight decreased [Unknown]
  - Diarrhoea [Recovering/Resolving]
  - Somnolence [Not Recovered/Not Resolved]
  - Rhinitis [Recovered/Resolved]
  - Nausea [Unknown]
  - Influenza like illness [Recovering/Resolving]
  - Weight increased [Recovering/Resolving]
  - Malaise [Recovering/Resolving]
  - Haemoglobin decreased [Recovering/Resolving]
  - Body height increased [Recovering/Resolving]
  - Scratch [Recovering/Resolving]
  - Skin irritation [Recovering/Resolving]
  - Blister [Recovering/Resolving]
  - Product dose omission issue [Unknown]
  - Transaminases increased [Unknown]
  - Swelling [Recovering/Resolving]
  - Nasopharyngitis [Recovering/Resolving]
  - Rash [Recovered/Resolved]
  - Headache [Recovering/Resolving]
  - Pruritus [Recovering/Resolving]

NARRATIVE: CASE EVENT DATE: 20200915
